FAERS Safety Report 18784226 (Version 2)
Quarter: 2021Q2

REPORT INFORMATION
  Report Type: Report from Study
  Country: None (occurrence: US)
  Receive Date: 20210126
  Receipt Date: 20210406
  Transmission Date: 20210717
  Serious: Yes (Other)
  Sender: FDA-Public Use
  Company Number: US-ABBVIE-20K-163-3629829-00

PATIENT
  Sex: Female

DRUGS (4)
  1. HUMIRA [Suspect]
     Active Substance: ADALIMUMAB
     Indication: COLITIS ULCERATIVE
     Dosage: DAY 1
     Route: 058
     Dates: start: 20201020, end: 20201020
  2. HUMIRA [Suspect]
     Active Substance: ADALIMUMAB
     Route: 058
     Dates: start: 202103
  3. HUMIRA [Suspect]
     Active Substance: ADALIMUMAB
     Route: 058
     Dates: start: 20201117, end: 202103
  4. HUMIRA [Suspect]
     Active Substance: ADALIMUMAB
     Dosage: DAY 15
     Route: 058
     Dates: start: 20201103, end: 20201103

REACTIONS (10)
  - Feeling hot [Not Recovered/Not Resolved]
  - Insomnia [Recovering/Resolving]
  - Headache [Recovering/Resolving]
  - Colitis ulcerative [Not Recovered/Not Resolved]
  - Haemorrhoids [Unknown]
  - Inflammation [Not Recovered/Not Resolved]
  - Arthritis [Recovering/Resolving]
  - Loss of personal independence in daily activities [Recovering/Resolving]
  - Arthralgia [Recovering/Resolving]
  - Therapeutic response shortened [Unknown]

NARRATIVE: CASE EVENT DATE: 2020
